FAERS Safety Report 18750218 (Version 1)
Quarter: 2021Q1

REPORT INFORMATION
  Report Type: Spontaneous
  Country: US (occurrence: US)
  Receive Date: 20210118
  Receipt Date: 20210118
  Transmission Date: 20210419
  Serious: Yes (Hospitalization, Other)
  Sender: FDA-Public Use
  Company Number: US-APOTEX-2021AP001173

PATIENT
  Age: 82 Year
  Sex: Male

DRUGS (2)
  1. IPRATROPIUM BROMIDE NASAL SOLUTION [Suspect]
     Active Substance: IPRATROPIUM BROMIDE
     Indication: PRODUCT USED FOR UNKNOWN INDICATION
     Dosage: 20 MICROGRAM (TWO TO THREE TIMES DAIL)
  2. IMMUNOGLOBULIN I.V [Concomitant]
     Active Substance: HUMAN IMMUNOGLOBULIN G
     Indication: PRODUCT USED FOR UNKNOWN INDICATION
     Dosage: UNK (EVERY FOUR WEEKS )
     Route: 065

REACTIONS (10)
  - Cognitive disorder [Unknown]
  - Blood pressure decreased [Unknown]
  - Toxicity to various agents [Unknown]
  - Fall [Unknown]
  - Blood bromide increased [Unknown]
  - Hallucination, visual [Unknown]
  - Anion gap increased [Unknown]
  - Gait disturbance [Unknown]
  - Mental status changes [Unknown]
  - Hyperchloraemia [Unknown]
